FAERS Safety Report 9198136 (Version 2)
Quarter: 2013Q2

REPORT INFORMATION
  Report Type: Spontaneous
  Country: US (occurrence: US)
  Receive Date: 20130329
  Receipt Date: 20130411
  Transmission Date: 20140414
  Serious: Yes (Death)
  Sender: FDA-Public Use
  Company Number: US-ELI_LILLY_AND_COMPANY-US201303009203

PATIENT
  Age: 47 Year
  Sex: Male

DRUGS (2)
  1. ADCIRCA [Suspect]
     Dosage: UNK
  2. FLOLAN [Concomitant]
     Indication: PULMONARY ARTERIAL HYPERTENSION

REACTIONS (1)
  - Dyspnoea [Fatal]
